FAERS Safety Report 8533320-X (Version None)
Quarter: 2012Q3

REPORT INFORMATION
  Report Type: 
  Country: None (occurrence: None)
  Receive Date: 20120724
  Receipt Date: 20120720
  Transmission Date: 20120928
  Serious: Yes (Other)
  Sender: FDA-Public Use
  Company Number: US-BRACCO-008318

PATIENT
  Sex: Female

DRUGS (3)
  1. MULTIHANCE [Suspect]
     Indication: HYPOAESTHESIA
     Route: 042
     Dates: start: 20120720, end: 20120720
  2. MULTIHANCE [Suspect]
     Indication: MIGRAINE
     Route: 042
     Dates: start: 20120720, end: 20120720
  3. MULTIHANCE [Suspect]
     Indication: NUCLEAR MAGNETIC RESONANCE IMAGING BRAIN
     Route: 042
     Dates: start: 20120720, end: 20120720

REACTIONS (1)
  - PRESYNCOPE [None]
